FAERS Safety Report 5023272-1 (Version None)
Quarter: 2006Q2

REPORT INFORMATION
  Report Type: 
  Country: None (occurrence: None)
  Receive Date: 20060612
  Receipt Date: 20060605
  Transmission Date: 20061013
  Serious: Yes (Other)
  Sender: FDA-Public Use
  Company Number: PHEH2006US07287

PATIENT
  Age: 74 Year
  Sex: Female

DRUGS (3)
  1. LESCOL XL [Suspect]
     Indication: HYPERCHOLESTEROLAEMIA
     Dosage: UNK, UNK
     Dates: start: 20050801, end: 20060101
  2. GLUCOPHAGE [Concomitant]
     Indication: DIABETES MELLITUS
  3. STARLIX [Concomitant]
     Indication: DIABETES MELLITUS

REACTIONS (5)
  - ANOREXIA [None]
  - BLOOD IRON DECREASED [None]
  - NAUSEA [None]
  - PLATELET COUNT INCREASED [None]
  - WEIGHT DECREASED [None]
